FAERS Safety Report 4607331-0 (Version None)
Quarter: 2005Q1

REPORT INFORMATION
  Report Type: 
  Country: None (occurrence: None)
  Receive Date: 20050311
  Receipt Date: 20050311
  Transmission Date: 20050727
  Serious: No
  Sender: FDA-Public Use
  Company Number: None

PATIENT
  Age: 59 Year
  Sex: Male
  Weight: 76.6579 kg

DRUGS (4)
  1. FLUCONAZOLE [Suspect]
     Indication: TINEA INFECTION
     Dosage: 150 MG PO Q WK
     Route: 048
     Dates: start: 20041220
  2. LISINOPRIL [Suspect]
     Indication: HYPERTENSION
     Dosage: 5 MG DAILY
  3. LISINOPRIL [Suspect]
     Indication: PROPHYLAXIS
     Dosage: 5 MG DAILY
  4. LISINOPRIL [Suspect]
     Indication: RENAL DISORDER
     Dosage: 5 MG DAILY

REACTIONS (2)
  - RASH ERYTHEMATOUS [None]
  - RASH PRURITIC [None]
